FAERS Safety Report 9054720 (Version 2)
Quarter: 2013Q3

REPORT INFORMATION
  Report Type: Spontaneous
  Country: US (occurrence: US)
  Receive Date: 20130208
  Receipt Date: 20130819
  Transmission Date: 20140515
  Serious: Yes (Life-Threatening, Hospitalization, Disabling)
  Sender: FDA-Public Use
  Company Number: US-BAYER-2013-015771

PATIENT
  Age: 49 Year
  Sex: Female
  Weight: 73 kg

DRUGS (18)
  1. OCELLA [Suspect]
  2. CITICOLINE [Concomitant]
  3. ZOCOR [Concomitant]
  4. COLACE [Concomitant]
  5. IRON [IRON] [Concomitant]
  6. INSULIN [INSULIN] [Concomitant]
  7. PREVACID [Concomitant]
  8. KEPPRA [Concomitant]
     Indication: CONVULSION
  9. PROVIGIL [Concomitant]
  10. TYLENOL [Concomitant]
  11. HYDRALAZINE [Concomitant]
  12. LABETALOL [Concomitant]
  13. PHENERGAN [PROMETHAZINE] [Concomitant]
  14. AMBIEN [Concomitant]
  15. MANNITOL [Concomitant]
     Indication: BRAIN OEDEMA
  16. DILANTIN [Concomitant]
     Indication: CONVULSION
  17. ZYRTEC-D [Concomitant]
  18. FLUTICASONE [Concomitant]

REACTIONS (3)
  - Transverse sinus thrombosis [Recovered/Resolved]
  - Ischaemic stroke [None]
  - Cerebral haemorrhage [None]
